FAERS Safety Report 4437807-0 (Version None)
Quarter: 2004Q3

REPORT INFORMATION
  Report Type: 
  Country: None (occurrence: None)
  Receive Date: 20040728
  Receipt Date: 20040305
  Transmission Date: 20050211
  Serious: No
  Sender: FDA-Public Use
  Company Number: USA040361207

PATIENT
  Age: 7 Year
  Sex: Male
  Weight: 39 kg

DRUGS (3)
  1. STRATTERA [Suspect]
     Indication: ATTENTION DEFICIT/HYPERACTIVITY DISORDER
     Dosage: 43 MG DAY
     Dates: start: 20040301
  2. STRATTERA [Suspect]
     Indication: DEPRESSION
     Dosage: 43 MG DAY
     Dates: start: 20040301
  3. STRATTERA [Suspect]
     Indication: POST-TRAUMATIC STRESS DISORDER
     Dosage: 43 MG DAY
     Dates: start: 20040301

REACTIONS (2)
  - PSYCHOMOTOR HYPERACTIVITY [None]
  - SUICIDE ATTEMPT [None]
